FAERS Safety Report 5766217-9 (Version None)
Quarter: 2008Q2

REPORT INFORMATION
  Report Type: 
  Country: None (occurrence: None)
  Receive Date: 20080609
  Receipt Date: 20080501
  Transmission Date: 20081010
  Serious: No
  Sender: FDA-Public Use
  Company Number: 002#2#2008-00357

PATIENT
  Age: 64 Year
  Sex: Male
  Weight: 79 kg

DRUGS (24)
  1. NEUPRO [Suspect]
     Indication: PARKINSON'S DISEASE
     Dosage: 6MG/24H,1 IN 1 D,TRANSDERMAL ; 4MG/24H,1 IN 1 D,TRANSDERMAL
     Route: 062
     Dates: start: 20080101, end: 20080401
  2. NEUPRO [Suspect]
     Indication: PARKINSON'S DISEASE
     Dosage: 6MG/24H,1 IN 1 D,TRANSDERMAL ; 4MG/24H,1 IN 1 D,TRANSDERMAL
     Route: 062
     Dates: start: 20080401
  3. SYMBICORT [Concomitant]
  4. SPIRIVA [Concomitant]
  5. STALEVO 100 [Concomitant]
  6. ACTONEL [Concomitant]
  7. SYNTHROID [Concomitant]
  8. AVODART [Concomitant]
  9. DUONEB [Concomitant]
  10. FLOMAX [Concomitant]
  11. ZONISAMIDE [Concomitant]
  12. PREVACID [Concomitant]
  13. CARBIDOPA AND LEVODOPA [Concomitant]
  14. MIRALAX [Concomitant]
  15. COQ10 [Concomitant]
  16. CENTRUM [Concomitant]
  17. KLOR-CON [Concomitant]
  18. FINASTERIDE [Concomitant]
  19. FUROSEMIDE [Concomitant]
  20. RM 10 VITAMIN [Concomitant]
  21. ASPIRIN [Concomitant]
  22. TUMS [Concomitant]
  23. ALBUTEROL [Concomitant]
  24. REQUIP [Concomitant]

REACTIONS (7)
  - ANXIETY [None]
  - DYSPNOEA [None]
  - FATIGUE [None]
  - GAIT DISTURBANCE [None]
  - INSOMNIA [None]
  - PHARMACEUTICAL PRODUCT COMPLAINT [None]
  - SENSORY DISTURBANCE [None]
